FAERS Safety Report 5868657-6 (Version None)
Quarter: 2008Q3

REPORT INFORMATION
  Report Type: 
  Country: None (occurrence: None)
  Receive Date: 20080903
  Receipt Date: 20080826
  Transmission Date: 20090109
  Serious: Yes (Other)
  Sender: FDA-Public Use
  Company Number: US-ASTRAZENECA-2008UW17467

PATIENT
  Age: 60 Year
  Sex: Female
  Weight: 63.6 kg

DRUGS (7)
  1. PRILOSEC [Suspect]
     Route: 048
  2. LYRICA [Suspect]
     Indication: FIBROMYALGIA
     Route: 048
     Dates: start: 20080401, end: 20080509
  3. NEURONTIN [Suspect]
  4. EFFEXOR [Suspect]
  5. TYLENOL (CAPLET) [Concomitant]
  6. VITAMIN TAB [Concomitant]
  7. CALCIUM WITH VITAMIN D [Concomitant]

REACTIONS (11)
  - ASTHENIA [None]
  - COGNITIVE DISORDER [None]
  - DISORIENTATION [None]
  - DIZZINESS [None]
  - DRUG INTOLERANCE [None]
  - FATIGUE [None]
  - FIBROMYALGIA [None]
  - HYPERTENSION [None]
  - MUSCULOSKELETAL CHEST PAIN [None]
  - SEDATION [None]
  - THROAT TIGHTNESS [None]
